FAERS Safety Report 10241582 (Version 1)
Quarter: 2014Q2

REPORT INFORMATION
  Report Type: Spontaneous
  Country: CH (occurrence: CH)
  Receive Date: 20140617
  Receipt Date: 20140617
  Transmission Date: 20141212
  Serious: Yes (Congenital Anomaly)
  Sender: FDA-Public Use
  Company Number: CH-SA-2014SA078925

PATIENT
  Sex: Female
  Weight: 2.3 kg

DRUGS (6)
  1. STILNOX CR [Suspect]
     Indication: INSOMNIA
     Route: 064
     Dates: start: 20140423
  2. FLUOXETINE HYDROCHLORIDE [Suspect]
     Indication: DEPRESSION
     Route: 064
     Dates: start: 2013, end: 20131001
  3. VALDOXAN [Suspect]
     Indication: DEPRESSION
     Route: 064
     Dates: start: 20131001, end: 20131016
  4. CIPRALEX [Suspect]
     Indication: DEPRESSION
     Route: 064
     Dates: start: 20131016
  5. CIPRALEX [Suspect]
     Indication: DEPRESSION
     Route: 064
  6. DALMADORM [Suspect]
     Indication: INSOMNIA
     Route: 064
     Dates: start: 20130626, end: 20140423

REACTIONS (5)
  - Syndactyly [Not Recovered/Not Resolved]
  - Congenital foot malformation [Not Recovered/Not Resolved]
  - Congenital hand malformation [Not Recovered/Not Resolved]
  - Premature baby [Unknown]
  - Exposure during pregnancy [Unknown]
